FAERS Safety Report 7166441-7 (Version None)
Quarter: 2010Q4

REPORT INFORMATION
  Report Type: 
  Country: None (occurrence: None)
  Receive Date: 20101216
  Receipt Date: 20101203
  Transmission Date: 20110411
  Serious: Yes (Other)
  Sender: FDA-Public Use
  Company Number: PHHY2010US82753

PATIENT
  Sex: Male

DRUGS (1)
  1. EXJADE [Suspect]
     Indication: LYMPHOPROLIFERATIVE DISORDER
     Dosage: 2500 MG
     Route: 048
     Dates: end: 20101112

REACTIONS (1)
  - FLUID RETENTION [None]
